FAERS Safety Report 9689059 (Version 1)
Quarter: 2013Q4

REPORT INFORMATION
  Report Type: Report from Study
  Country: US (occurrence: US)
  Receive Date: 20131114
  Receipt Date: 20131114
  Transmission Date: 20140711
  Serious: Yes (Other)
  Sender: FDA-Public Use
  Company Number: US-PURDUE-USA-2013-0108499

PATIENT
  Age: 72 Year
  Sex: Female

DRUGS (2)
  1. OXY CR TAB [Suspect]
     Indication: PRODUCT USED FOR UNKNOWN INDICATION
     Dosage: UNK
     Route: 048
     Dates: start: 2011
  2. OXY CR TAB [Suspect]
     Dosage: 20 MG, Q12H
     Route: 048
     Dates: start: 20131008

REACTIONS (1)
  - Breast cancer [Unknown]
